FAERS Safety Report 10512675 (Version 2)
Quarter: 2014Q4

REPORT INFORMATION
  Report Type: Report from Study
  Country: AU (occurrence: AU)
  Receive Date: 20141012
  Receipt Date: 20141012
  Transmission Date: 20150528
  Serious: Yes (Other)
  Sender: FDA-Public Use
  Company Number: AU-ROCHE-1243216

PATIENT
  Age: 68 Year
  Sex: Female
  Weight: 100 kg

DRUGS (7)
  1. ACTEMRA [Suspect]
     Active Substance: TOCILIZUMAB
     Route: 042
     Dates: start: 20110902
  2. CLARATYNE [Concomitant]
     Active Substance: LORATADINE
     Route: 065
  3. HISTAMINE [Concomitant]
     Active Substance: HISTAMINE
  4. ACTEMRA [Suspect]
     Active Substance: TOCILIZUMAB
     Indication: RHEUMATOID ARTHRITIS
     Dosage: ONGOING
     Route: 042
  5. PROZAC [Concomitant]
     Active Substance: FLUOXETINE HYDROCHLORIDE
     Indication: DEPRESSION
     Dosage: ONGOING
     Route: 048
  6. ACTEMRA [Suspect]
     Active Substance: TOCILIZUMAB
     Route: 042
  7. PREDNISONE. [Concomitant]
     Active Substance: PREDNISONE
     Route: 065
     Dates: start: 20141009

REACTIONS (5)
  - Catheter site erythema [Unknown]
  - Rash [Recovered/Resolved]
  - Pruritus generalised [Unknown]
  - Urticaria [Recovered/Resolved]
  - Infusion related reaction [Recovered/Resolved]

NARRATIVE: CASE EVENT DATE: 20130428
